FAERS Safety Report 5419414-6 (Version None)
Quarter: 2007Q3

REPORT INFORMATION
  Report Type: 
  Country: None (occurrence: None)
  Receive Date: 20070820
  Receipt Date: 20070815
  Transmission Date: 20080115
  Serious: Yes (Other)
  Sender: FDA-Public Use
  Company Number: A0671238A

PATIENT
  Age: 51 Year
  Sex: Female

DRUGS (10)
  1. ZYBAN [Suspect]
     Indication: DRUG USE FOR UNKNOWN INDICATION
     Dosage: 150MG PER DAY
     Route: 048
  2. ATENOLOL [Concomitant]
     Route: 048
  3. CELEBREX [Concomitant]
     Route: 048
  4. CES [Concomitant]
     Route: 048
  5. ENALAPRIL MALEATE [Concomitant]
     Route: 048
  6. HYDROCHLOROTHIAZIDE [Concomitant]
     Route: 048
  7. LIPITOR [Concomitant]
     Route: 048
  8. NU-TRIAZIDE [Concomitant]
     Route: 048
  9. PROGESTERONE [Concomitant]
     Route: 048
  10. VERAPAMIL [Concomitant]
     Route: 048

REACTIONS (4)
  - ASTHENIA [None]
  - FLUSHING [None]
  - HYPERHIDROSIS [None]
  - HYPONATRAEMIA [None]
